FAERS Safety Report 19706654 (Version 6)
Quarter: 2022Q4

REPORT INFORMATION
  Report Type: Spontaneous
  Country: CA (occurrence: None)
  Receive Date: 20210817
  Receipt Date: 20221024
  Transmission Date: 20230113
  Serious: Yes (Hospitalization, Other)
  Sender: FDA-Public Use
  Company Number: 2021A674235

PATIENT
  Age: 49 Year
  Sex: Female

DRUGS (27)
  1. PROPOFOL [Interacting]
     Active Substance: PROPOFOL
     Indication: Induction of anaesthesia
     Dosage: UNK9.0MG/KG UNKNOWN
     Route: 065
  2. QUETIAPINE FUMARATE [Interacting]
     Active Substance: QUETIAPINE FUMARATE
     Indication: Depression
     Dosage: 25 MG , 1 DOSE 12 HOURS
     Route: 048
  3. QUETIAPINE FUMARATE [Interacting]
     Active Substance: QUETIAPINE FUMARATE
     Indication: Anxiety
     Dosage: 25 MG , 1 DOSE 12 HOURS
     Route: 048
  4. QUETIAPINE FUMARATE [Interacting]
     Active Substance: QUETIAPINE FUMARATE
     Indication: Hypotension
     Dosage: 25 MG , 1 DOSE 12 HOURS
     Route: 048
  5. QUETIAPINE FUMARATE [Interacting]
     Active Substance: QUETIAPINE FUMARATE
     Indication: Depression
     Route: 065
  6. QUETIAPINE FUMARATE [Interacting]
     Active Substance: QUETIAPINE FUMARATE
     Indication: Anxiety
     Route: 065
  7. QUETIAPINE FUMARATE [Interacting]
     Active Substance: QUETIAPINE FUMARATE
     Indication: Hypotension
     Route: 065
  8. CLONAZEPAM [Interacting]
     Active Substance: CLONAZEPAM
     Indication: Depression
     Dosage: UNK1.0MG UNKNOWN
     Route: 065
  9. CLONAZEPAM [Interacting]
     Active Substance: CLONAZEPAM
     Indication: Anxiety
     Dosage: UNK1.0MG UNKNOWN
     Route: 065
  10. CLONAZEPAM [Interacting]
     Active Substance: CLONAZEPAM
     Indication: Depression
     Dosage: UNK0.5MG UNKNOWN
     Route: 065
  11. CLONAZEPAM [Interacting]
     Active Substance: CLONAZEPAM
     Indication: Anxiety
     Dosage: UNK0.5MG UNKNOWN
     Route: 065
  12. DIAZEPAM [Interacting]
     Active Substance: DIAZEPAM
     Indication: Preoperative care
     Dosage: UNK10.0MG UNKNOWN
     Route: 065
  13. FENTANYL [Interacting]
     Active Substance: FENTANYL
     Indication: Anaesthesia
     Dosage: UNK13.0UG/KG UNKNOWN
     Route: 042
  14. FLUVOXAMINE [Interacting]
     Active Substance: FLUVOXAMINE
     Indication: Product used for unknown indication
     Dosage: UNK
     Route: 065
  15. MEPERIDINE [Interacting]
     Active Substance: MEPERIDINE
     Indication: Product used for unknown indication
     Dosage: UNK
     Route: 065
  16. METHYLENE BLUE [Interacting]
     Active Substance: METHYLENE BLUE
     Indication: Hypotension
     Dosage: UNK1.0MG/KG UNKNOWN
     Route: 065
  17. MIDAZOLAM [Interacting]
     Active Substance: MIDAZOLAM
     Indication: Anaesthesia
     Dosage: UNK0.3UG/KG UNKNOWN
     Route: 065
  18. NOREPINEPHRINE [Interacting]
     Active Substance: NOREPINEPHRINE
     Indication: Hypotension
     Dosage: UNK
     Route: 065
  19. NOREPINEPHRINE [Interacting]
     Active Substance: NOREPINEPHRINE
     Indication: Hypotension
     Dosage: UNK
     Route: 065
  20. PAROXETINE HYDROCHLORIDE [Interacting]
     Active Substance: PAROXETINE HYDROCHLORIDE
     Indication: Depression
     Dosage: UNK40.0MG UNKNOWN
     Route: 065
  21. PAROXETINE HYDROCHLORIDE [Interacting]
     Active Substance: PAROXETINE HYDROCHLORIDE
     Indication: Anxiety
     Dosage: UNK40.0MG UNKNOWN
     Route: 065
  22. ROCURONIUM [Interacting]
     Active Substance: ROCURONIUM BROMIDE
     Indication: Hypotonia
     Dosage: UNK1.0MG/KG UNKNOWN
     Route: 065
  23. ROCURONIUM [Interacting]
     Active Substance: ROCURONIUM BROMIDE
     Indication: Anxiety
     Dosage: UNK1.0MG/KG UNKNOWN
     Route: 065
  24. ROCURONIUM [Interacting]
     Active Substance: ROCURONIUM BROMIDE
     Indication: Depression
     Dosage: UNK1.0MG/KG UNKNOWN
     Route: 065
  25. SEVOFLURANE [Interacting]
     Active Substance: SEVOFLURANE
     Indication: Maintenance of anaesthesia
     Dosage: UNK
     Route: 065
  26. SEVOFLURANE [Interacting]
     Active Substance: SEVOFLURANE
     Indication: Anxiety
     Dosage: UNK
     Route: 065
  27. SEVOFLURANE [Interacting]
     Active Substance: SEVOFLURANE
     Indication: Depression
     Dosage: UNK
     Route: 065

REACTIONS (12)
  - Drug interaction [Recovered/Resolved]
  - Alanine aminotransferase increased [Recovered/Resolved]
  - Amylase increased [Recovered/Resolved]
  - Blood creatine phosphokinase increased [Recovered/Resolved]
  - Blood lactate dehydrogenase increased [Recovered/Resolved]
  - Blood potassium increased [Recovered/Resolved]
  - Hypotension [Recovered/Resolved]
  - Myoglobin urine present [Recovered/Resolved]
  - Serotonin syndrome [Recovered/Resolved]
  - Toxic encephalopathy [Recovered/Resolved]
  - Troponin increased [Recovered/Resolved]
  - Drug level below therapeutic [Recovered/Resolved]
